FAERS Safety Report 8353024-6 (Version None)
Quarter: 2012Q2

REPORT INFORMATION
  Report Type: 
  Country: None (occurrence: None)
  Receive Date: 20120511
  Receipt Date: 20120430
  Transmission Date: 20120825
  Serious: Yes (Other)
  Sender: FDA-Public Use
  Company Number: DE-BRISTOL-MYERS SQUIBB COMPANY-16565301

PATIENT
  Age: 1 Day
  Sex: Male
  Weight: 2 kg

DRUGS (8)
  1. VALDOXAN [Suspect]
     Route: 064
     Dates: end: 20100218
  2. FOLIC ACID [Concomitant]
  3. MORPHINE SULFATE [Suspect]
     Dosage: ALSO ORALLY
     Route: 064
     Dates: start: 20091014, end: 20100613
  4. HYDROXYUREA [Suspect]
     Route: 064
     Dates: start: 20091014, end: 20100218
  5. MELPERONE HCL [Suspect]
     Dosage: 1DF:3X1 TABLET
     Route: 064
     Dates: end: 20100218
  6. HALDOL [Suspect]
     Route: 064
  7. OMEPRAZOLE [Concomitant]
     Route: 064
  8. MEPERIDINE HCL [Suspect]
     Route: 064
     Dates: start: 20091014, end: 20100613

REACTIONS (2)
  - DRUG WITHDRAWAL SYNDROME NEONATAL [None]
  - OESOPHAGEAL ATRESIA [None]
